FAERS Safety Report 13938793 (Version 1)
Quarter: 2017Q3

REPORT INFORMATION
  Report Type: Spontaneous
  Country: US (occurrence: US)
  Receive Date: 20170906
  Receipt Date: 20170906
  Transmission Date: 20171127
  Serious: Yes (Other)
  Sender: FDA-Public Use
  Company Number: US-ALVOGEN-2017-ALVOGEN-093356

PATIENT
  Age: 58 Year
  Sex: Male
  Weight: 73.48 kg

DRUGS (7)
  1. LANTUS [Concomitant]
     Active Substance: INSULIN GLARGINE
     Indication: BLOOD INSULIN ABNORMAL
  2. LISINOPRIL. [Suspect]
     Active Substance: LISINOPRIL
     Indication: BLOOD PRESSURE ABNORMAL
  3. ONGLYZA [Suspect]
     Active Substance: SAXAGLIPTIN HYDROCHLORIDE
     Indication: DIABETES MELLITUS
  4. PRAVASTATIN. [Concomitant]
     Active Substance: PRAVASTATIN
     Indication: BLOOD CHOLESTEROL INCREASED
  5. ASPIRIN. [Concomitant]
     Active Substance: ASPIRIN
     Indication: PRODUCT USED FOR UNKNOWN INDICATION
  6. METFORMIN [Concomitant]
     Active Substance: METFORMIN HYDROCHLORIDE
     Indication: BLOOD GLUCOSE ABNORMAL
  7. LISPRO INSULIN [Concomitant]
     Active Substance: INSULIN LISPRO
     Indication: BLOOD INSULIN ABNORMAL

REACTIONS (4)
  - Type 2 diabetes mellitus [Unknown]
  - Type 1 diabetes mellitus [Unknown]
  - Visual impairment [Unknown]
  - Sight disability [Unknown]

NARRATIVE: CASE EVENT DATE: 201601
